FAERS Safety Report 9837468 (Version 1)
Quarter: 2014Q1

REPORT INFORMATION
  Report Type: Spontaneous
  Country: US (occurrence: None)
  Receive Date: 20140117
  Receipt Date: 20140117
  Transmission Date: 20141002
  Serious: Yes (Hospitalization)
  Sender: FDA-Public Use
  Company Number: None

PATIENT
  Age: 31 Year
  Sex: Male
  Weight: 81.65 kg

DRUGS (2)
  1. CIPROFLOXACIN [Suspect]
     Indication: URINARY TRACT INFECTION
     Dosage: 1 A DAY  MOUTH
     Route: 048
     Dates: start: 20130810, end: 20130815
  2. CIPROFLOXACIN [Suspect]
     Indication: EPIDIDYMITIS
     Dosage: 1 A DAY  MOUTH
     Route: 048
     Dates: start: 20130810, end: 20130815

REACTIONS (4)
  - Anxiety [None]
  - Depression [None]
  - Rash [None]
  - Feeling abnormal [None]
